FAERS Safety Report 5018300-3 (Version None)
Quarter: 2006Q2

REPORT INFORMATION
  Report Type: 
  Country: None (occurrence: None)
  Receive Date: 20060530
  Receipt Date: 20060522
  Transmission Date: 20061013
  Serious: Yes (Death, Hospitalization)
  Sender: FDA-Public Use
  Company Number: 2006-03-1771

PATIENT
  Age: 67 Year
  Sex: Female
  Weight: 55 kg

DRUGS (7)
  1. TEMOXOL CAPSULES (TEMOZOLOMIDE) (LIKE TEMODAR) [Suspect]
     Indication: GLIOBLASTOMA MULTIFORME
     Dosage: 300 MG QDX5D ORAL
     Route: 048
     Dates: start: 20060207, end: 20060211
  2. ONDANSETRON TABLETS [Concomitant]
  3. POTASSIUM SUPPLEMENT [Concomitant]
  4. DISPRIN [Concomitant]
  5. LIPITOR [Concomitant]
  6. CONVULEX [Concomitant]
  7. CONCOR [Concomitant]

REACTIONS (4)
  - BONE MARROW FAILURE [None]
  - DEPRESSED LEVEL OF CONSCIOUSNESS [None]
  - HAEMORRHAGE [None]
  - PNEUMONIA [None]
